FAERS Safety Report 21463911 (Version 1)
Quarter: 2022Q4

REPORT INFORMATION
  Report Type: Spontaneous
  Country: US (occurrence: US)
  Receive Date: 20221017
  Receipt Date: 20221017
  Transmission Date: 20230113
  Serious: No
  Sender: FDA-Public Use
  Company Number: US-ELI_LILLY_AND_COMPANY-US202210007026

PATIENT

DRUGS (1)
  1. FORTEO [Suspect]
     Active Substance: TERIPARATIDE
     Indication: Product used for unknown indication
     Dosage: UNK UNK, DAILY
     Route: 065
     Dates: start: 202208

REACTIONS (9)
  - Arthropathy [Unknown]
  - Fall [Unknown]
  - Bone pain [Unknown]
  - Peripheral swelling [Unknown]
  - Muscular weakness [Unknown]
  - Mobility decreased [Unknown]
  - Medial tibial stress syndrome [Unknown]
  - Arthralgia [Unknown]
  - Muscle spasms [Unknown]
